FAERS Safety Report 19050924 (Version 1)
Quarter: 2021Q1

REPORT INFORMATION
  Report Type: Spontaneous
  Country: US (occurrence: US)
  Receive Date: 20210324
  Receipt Date: 20210324
  Transmission Date: 20210420
  Serious: Yes (Other)
  Sender: FDA-Public Use
  Company Number: None

PATIENT
  Age: 44 Year
  Sex: Female
  Weight: 83.25 kg

DRUGS (9)
  1. PREDNISONE. [Concomitant]
     Active Substance: PREDNISONE
  2. BENADRYL [Concomitant]
     Active Substance: DIPHENHYDRAMINE HYDROCHLORIDE
  3. LILETTA [Concomitant]
     Active Substance: LEVONORGESTREL
  4. VITAMIN D [Concomitant]
     Active Substance: VITAMIN D NOS
  5. GABAPENTIN. [Concomitant]
     Active Substance: GABAPENTIN
  6. TIZANIDINE HCL 4 MG [Suspect]
     Active Substance: TIZANIDINE HYDROCHLORIDE
     Indication: MUSCLE SPASMS
     Dosage: ?          QUANTITY:1 TABLET(S);?
     Route: 048
     Dates: start: 20210323, end: 20210323
  7. MELATONIN [Concomitant]
     Active Substance: MELATONIN
  8. BOTOX [Concomitant]
     Active Substance: ONABOTULINUMTOXINA
  9. CALCIUM 600 MG [Concomitant]

REACTIONS (5)
  - Insomnia [None]
  - Heart rate decreased [None]
  - Product substitution issue [None]
  - Asthenia [None]
  - Aphasia [None]

NARRATIVE: CASE EVENT DATE: 20210323
